FAERS Safety Report 6232961-2 (Version None)
Quarter: 2009Q2

REPORT INFORMATION
  Report Type: 
  Country: None (occurrence: None)
  Receive Date: 20090612
  Receipt Date: 20090603
  Transmission Date: 20091009
  Serious: Yes (Hospitalization)
  Sender: FDA-Public Use
  Company Number: US-WYE-H09581309

PATIENT
  Age: 50 Year
  Sex: Female

DRUGS (5)
  1. ADVIL LIQUI-GELS [Suspect]
     Indication: PAIN
     Dosage: 800 MG 3X PER 1 DAY, ORAL
     Route: 048
     Dates: start: 20090301
  2. REBIF [Suspect]
     Indication: MULTIPLE SCLEROSIS
     Dosage: 44 MCG 3 TIMES WEEKLY, SUBCUTANEOUS
     Route: 058
     Dates: start: 20060210, end: 20090329
  3. REBIF [Suspect]
     Indication: MULTIPLE SCLEROSIS
     Dosage: 44 MCG 3 TIMES WEEKLY, SUBCUTANEOUS
     Route: 058
     Dates: start: 20090407
  4. NEURONTIN [Concomitant]
  5. BACLOFEN [Concomitant]

REACTIONS (4)
  - FATIGUE [None]
  - INTESTINAL PROLAPSE [None]
  - PELVIC PROLAPSE [None]
  - RENAL FAILURE ACUTE [None]
